FAERS Safety Report 21852980 (Version 1)
Quarter: 2023Q1

REPORT INFORMATION
  Report Type: Report from Study
  Country: EG (occurrence: EG)
  Receive Date: 20230112
  Receipt Date: 20230112
  Transmission Date: 20230418
  Serious: Yes (Other)
  Sender: FDA-Public Use
  Company Number: EG-002147023-NVSC2023EG005216

PATIENT
  Sex: Female

DRUGS (3)
  1. OMNITROPE [Suspect]
     Active Substance: SOMATROPIN
     Indication: Growth hormone deficiency
     Dosage: 1.6 MG, QD
     Route: 058
     Dates: start: 20190629
  2. OSTEOCARE [Concomitant]
     Active Substance: CALCIUM\CHOLECALCIFEROL\MAGNESIUM\ZINC
     Indication: Supplementation therapy
     Dosage: 1 DOSAGE FORM, QD (SINCE 3 YEARS AGO TILL NOW AS PER AS THE REPORTER)
     Route: 048
  3. OCTOZINC [Concomitant]
     Indication: Supplementation therapy
     Dosage: 1 DOSAGE FORM, QD (SINCE 2 YEARS AGO TILL NOW AS PER AS THE REPORTER)
     Route: 048

REACTIONS (3)
  - Precocious puberty [Not Recovered/Not Resolved]
  - Product availability issue [Unknown]
  - Drug ineffective [Unknown]
